FAERS Safety Report 6750289-9 (Version None)
Quarter: 2010Q2

REPORT INFORMATION
  Report Type: 
  Country: None (occurrence: None)
  Receive Date: 20100527
  Receipt Date: 20100519
  Transmission Date: 20101027
  Serious: Yes (Other)
  Sender: FDA-Public Use
  Company Number: 1000013988

PATIENT
  Age: 57 Year
  Sex: Female
  Weight: 78.9259 kg

DRUGS (10)
  1. LEXAPRO [Suspect]
     Indication: DEPRESSION
     Dosage: 20 MG (20 MG, 1 IN 1 D)
     Dates: start: 20090901
  2. CELEBREX [Suspect]
     Indication: BACK PAIN
     Dosage: (3 IN 1 D)
  3. SEROQUEL [Suspect]
     Indication: SLEEP DISORDER
     Dosage: 600 MG (600 MG, AT BEDTIME)
     Dates: start: 20090901
  4. TEGRETOL [Concomitant]
  5. LOPRESSOR [Concomitant]
  6. GLUCOPHAGE [Concomitant]
  7. PRILOSEC [Concomitant]
  8. DICHLORALPHENAZONE/ISOMETHEPTENE MUCATE/ACETAMINOPHEN [Concomitant]
  9. SYNTHROID [Concomitant]
  10. KLONOPIN [Concomitant]

REACTIONS (6)
  - ABDOMINAL PAIN UPPER [None]
  - DRUG INEFFECTIVE [None]
  - MENISCUS LESION [None]
  - NAUSEA [None]
  - POOR QUALITY SLEEP [None]
  - SPINAL FRACTURE [None]
